FAERS Safety Report 23034833 (Version 5)
Quarter: 2024Q4

REPORT INFORMATION
  Report Type: Spontaneous
  Country: US (occurrence: US)
  Receive Date: 20231005
  Receipt Date: 20241231
  Transmission Date: 20250114
  Serious: No
  Sender: PFIZER
  Company Number: US-PFIZER INC-PV202300155637

PATIENT
  Age: 65 Year
  Sex: Female

DRUGS (2)
  1. XELJANZ [Suspect]
     Active Substance: TOFACITINIB CITRATE
     Indication: Rheumatoid arthritis
     Dosage: 5 MG, 1X/DAY
  2. XELJANZ [Suspect]
     Active Substance: TOFACITINIB CITRATE
     Indication: Psoriatic arthropathy
     Dosage: TAKE 5 MG BY MOUTH IN THE MORNING AND 5 MG BEFORE BEDTIME
     Route: 048
     Dates: start: 202103

REACTIONS (8)
  - Conversion disorder [Unknown]
  - Pain [Unknown]
  - Post-traumatic stress disorder [Unknown]
  - Skin discolouration [Unknown]
  - Raynaud^s phenomenon [Unknown]
  - Rash [Unknown]
  - Skin ulcer [Unknown]
  - Intentional product use issue [Unknown]

NARRATIVE: CASE EVENT DATE: 20240101
